FAERS Safety Report 17492557 (Version 1)
Quarter: 2020Q1

REPORT INFORMATION
  Report Type: Spontaneous
  Country: FR (occurrence: FR)
  Receive Date: 20200304
  Receipt Date: 20200304
  Transmission Date: 20200409
  Serious: Yes (Life-Threatening)
  Sender: FDA-Public Use
  Company Number: FR-TEVA-2020-FR-1193814

PATIENT
  Age: 0 Day
  Sex: Male
  Weight: 2.69 kg

DRUGS (7)
  1. DONORMYL (DOXYLAMINE SUCCINATE\SODIUM PHOSPHATE DIBASIC\SODIUM BROMIDE\SODIUM SULFATE) [Suspect]
     Active Substance: DOXYLAMINE\SODIUM BROMIDE\SODIUM PHOSPHATE, DIBASIC, ANHYDROUS\SODIUM SULFATE
     Indication: INSOMNIA
     Dosage: 15 MG
     Route: 064
     Dates: end: 20200123
  2. ZOPICLONE [Suspect]
     Active Substance: ZOPICLONE
     Indication: INSOMNIA
     Dosage: 7.5 MG
     Route: 064
     Dates: end: 20200128
  3. LEXOMIL ROCHE [Suspect]
     Active Substance: BROMAZEPAM
     Indication: ANXIETY
     Dosage: 12 MG
     Route: 064
     Dates: end: 20200204
  4. MIRTAZAPINE. [Suspect]
     Active Substance: MIRTAZAPINE
     Indication: DEPRESSION
     Dosage: 15 MG
     Route: 064
     Dates: end: 20200130
  5. VENLAFAXINE [Suspect]
     Active Substance: VENLAFAXINE HYDROCHLORIDE
     Indication: DEPRESSION
     Dosage: 225 MG
     Route: 064
     Dates: end: 20200204
  6. SULFARLEM 12,5 MG, COMPRIM? ENROB? [Suspect]
     Active Substance: ANETHOLTRITHION
     Indication: APTYALISM
     Dosage: 4 DF
     Route: 064
     Dates: end: 20200204
  7. METHADONE AP-HP [Suspect]
     Active Substance: METHADONE HYDROCHLORIDE
     Indication: DRUG DEPENDENCE
     Dosage: 110 MG
     Route: 064
     Dates: end: 20200204

REACTIONS (3)
  - Withdrawal syndrome [Recovered/Resolved]
  - Premature baby [Recovered/Resolved with Sequelae]
  - Respiratory distress [Recovered/Resolved]

NARRATIVE: CASE EVENT DATE: 20200207
